FAERS Safety Report 20693143 (Version 7)
Quarter: 2022Q4

REPORT INFORMATION
  Report Type: Spontaneous
  Country: US (occurrence: US)
  Receive Date: 20220410
  Receipt Date: 20221014
  Transmission Date: 20230112
  Serious: Yes (Other)
  Sender: FDA-Public Use
  Company Number: US-BRISTOL-MYERS SQUIBB COMPANY-2022-014030

PATIENT
  Age: 76 Year
  Sex: Male

DRUGS (4)
  1. REVLIMID [Suspect]
     Active Substance: LENALIDOMIDE
     Indication: Plasma cell myeloma
     Dosage: TAKE 1 CAPSULE EVERY DAY ON DAYS 1-14 EVERY 21 DAYS
     Route: 048
  2. REVLIMID [Suspect]
     Active Substance: LENALIDOMIDE
     Indication: Thrombocytopenia
     Dosage: TAKE 1 CAPSULE BY MOUTH DAILY ON DAYS 1-14 OF A 21 DAY CYCLE
     Route: 048
  3. REVLIMID [Suspect]
     Active Substance: LENALIDOMIDE
     Dosage: TAKE 1 CAPSULE BY MOUTH DAILY FOR 21 DAYS FOLLOWED BY 7 DAYS OFF, 28 DAY CYCLE
     Route: 048
     Dates: start: 20160607
  4. NINLARO [Suspect]
     Active Substance: IXAZOMIB CITRATE
     Indication: Product used for unknown indication
     Route: 065

REACTIONS (13)
  - Pain [Unknown]
  - Swelling [Unknown]
  - Decreased appetite [Unknown]
  - Malaise [Unknown]
  - Plasma cell myeloma [Unknown]
  - Stomatitis [Unknown]
  - Dry skin [Unknown]
  - Back pain [Unknown]
  - Neck pain [Unknown]
  - Arthralgia [Unknown]
  - Gastroenteritis viral [Recovered/Resolved]
  - White blood cell count decreased [Recovered/Resolved]
  - Stenosis [Unknown]
